FAERS Safety Report 9318031 (Version 1)
Quarter: 2013Q2

REPORT INFORMATION
  Report Type: Spontaneous
  Country: US (occurrence: US)
  Receive Date: 20130530
  Receipt Date: 20130530
  Transmission Date: 20140414
  Serious: No
  Sender: FDA-Public Use
  Company Number: US-GLAXOSMITHKLINE-A1001276A

PATIENT
  Age: 59 Year
  Sex: Male

DRUGS (7)
  1. VENTOLIN [Suspect]
     Indication: THROMBOSIS
     Dosage: 1PUFF TWICE PER DAY
     Route: 055
     Dates: start: 20120825
  2. ADVAIR [Concomitant]
  3. OMEPRAZOLE [Concomitant]
  4. VITAMIN D3 [Concomitant]
  5. CALCIUM CARBONATE [Concomitant]
  6. COUMADIN [Concomitant]
  7. DICLOFENAC SODIUM [Concomitant]

REACTIONS (2)
  - Muscle spasms [Not Recovered/Not Resolved]
  - Muscle spasms [Unknown]
